FAERS Safety Report 7993281-9 (Version None)
Quarter: 2011Q4

REPORT INFORMATION
  Report Type: 
  Country: None (occurrence: None)
  Receive Date: 20111219
  Receipt Date: 20110427
  Transmission Date: 20120403
  Serious: No
  Sender: FDA-Public Use
  Company Number: US-ASTRAZENECA-2011SE24723

PATIENT
  Age: 55 Year
  Sex: Male

DRUGS (4)
  1. CRESTOR [Suspect]
     Route: 048
  2. ATENOLOL [Concomitant]
  3. ISOSORBIDE DINITRATE [Concomitant]
  4. PLAVIX [Concomitant]

REACTIONS (2)
  - MYALGIA [None]
  - PAIN [None]
